FAERS Safety Report 5242442-0 (Version None)
Quarter: 2007Q1

REPORT INFORMATION
  Report Type: 
  Country: None (occurrence: None)
  Receive Date: 20070214
  Receipt Date: 20070208
  Transmission Date: 20070707
  Serious: Yes (Death, Life-Threatening, Hospitalization)
  Sender: FDA-Public Use
  Company Number: CLOF-10450

PATIENT
  Age: 68 Year
  Sex: Female

DRUGS (14)
  1. CLOFARABINE [Suspect]
     Indication: ACUTE MYELOID LEUKAEMIA
     Dosage: 38 MG QD X 5 IV
     Route: 042
     Dates: start: 20070123, end: 20070127
  2. IDARUBICIN HCL [Suspect]
     Indication: ACUTE MYELOID LEUKAEMIA
     Dosage: 10 MG QD X 3 IV
     Route: 042
     Dates: start: 20070122, end: 20070124
  3. CYTARABINE [Suspect]
     Indication: ACUTE MYELOID LEUKAEMIA
     Dosage: 1.3 G QD X 5 IV
     Route: 042
     Dates: start: 20070122, end: 20070126
  4. VASOPRESSIN [Concomitant]
  5. SODIUM BICARBONATE [Concomitant]
  6. HYDROCORTISONE SODIUM SUCCINATE [Concomitant]
  7. VANCOMYCIN HYDROCHLORIDE [Concomitant]
  8. MOXIFLOXACIN HCL [Concomitant]
  9. AZTREONAM [Concomitant]
  10. DOPAMINE HCL [Concomitant]
  11. NOREPINEPHRINE BITARTRATE [Concomitant]
  12. ESOMEPRAZOLE SODIUM [Concomitant]
  13. PHENYLEPHRINE [Concomitant]
  14. DOBUTAMINE [Concomitant]

REACTIONS (9)
  - ASTHENIA [None]
  - CARDIO-RESPIRATORY ARREST [None]
  - DYSPNOEA [None]
  - ELECTROLYTE IMBALANCE [None]
  - GENERAL PHYSICAL HEALTH DETERIORATION [None]
  - HYPOTENSION [None]
  - INFECTION [None]
  - MULTI-ORGAN FAILURE [None]
  - NEUTROPHIL COUNT ABNORMAL [None]
